FAERS Safety Report 8765149 (Version 2)
Quarter: 2012Q4

REPORT INFORMATION
  Report Type: 
  Country: PT (occurrence: PT)
  Receive Date: 20120903
  Receipt Date: 20120903
  Transmission Date: 20130627
  Serious: Yes (Disabling)
  Sender: FDA-Public Use
  Company Number: PT-009507513-2012SP016467

PATIENT
  Age: 32 Year
  Sex: Female

DRUGS (1)
  1. ZOELY [Suspect]
     Indication: CONTRACEPTION
     Dosage: UNK

REACTIONS (3)
  - Migraine with aura [Recovered/Resolved]
  - Abnormal withdrawal bleeding [Recovered/Resolved]
  - Inappropriate schedule of drug administration [Unknown]
